FAERS Safety Report 4300422-3 (Version None)
Quarter: 2004Q1

REPORT INFORMATION
  Report Type: 
  Country: None (occurrence: None)
  Receive Date: 20040218
  Receipt Date: 20040213
  Transmission Date: 20041129
  Serious: Yes (Life-Threatening)
  Sender: FDA-Public Use
  Company Number: TCI2004A00269

PATIENT
  Age: 37 Year
  Sex: Female

DRUGS (7)
  1. LEUPROLIDE ACETATE [Suspect]
     Indication: UTERINE LEIOMYOMA
     Dosage: 1.88 MG (1.88 MG, 1 IN 28 D)
     Route: 058
     Dates: start: 20030813, end: 20040109
  2. PREDNISOLONE [Concomitant]
  3. RANITIDINE HYDROCHLORIDE [Concomitant]
  4. CALTAN (PRECIPITATED CALCIUM CARBONATE) (CALCIUM CARBONATE) (TABLETS) [Concomitant]
  5. REBAMIPIDE (TABLETS) [Concomitant]
  6. MIZORIBINE (TABLETS) [Concomitant]
  7. SEVELAMER HYDROCHLORIDE (TABLETS) [Concomitant]

REACTIONS (2)
  - DIALYSIS [None]
  - PANCYTOPENIA [None]
